FAERS Safety Report 15694645 (Version 4)
Quarter: 2019Q1

REPORT INFORMATION
  Report Type: Report from Study
  Country: US (occurrence: US)
  Receive Date: 20181206
  Receipt Date: 20190213
  Transmission Date: 20190417
  Serious: Yes (Hospitalization)
  Sender: FDA-Public Use
  Company Number: US-GILEAD-2018-0373207

PATIENT
  Age: 51 Year
  Sex: Female

DRUGS (4)
  1. UPTRAVI [Concomitant]
     Active Substance: SELEXIPAG
     Dosage: 200 UG, BID
  2. REVATIO [Concomitant]
     Active Substance: SILDENAFIL CITRATE
  3. NIFEDIPINE. [Concomitant]
     Active Substance: NIFEDIPINE
  4. AMBRISENTAN [Suspect]
     Active Substance: AMBRISENTAN
     Indication: PRODUCT USED FOR UNKNOWN INDICATION
     Dosage: 10 MG, QD
     Route: 065
     Dates: start: 20181024

REACTIONS (12)
  - Abdominal discomfort [Unknown]
  - Back pain [Recovering/Resolving]
  - Malaise [Unknown]
  - Asthenia [Unknown]
  - Incorrect dosage administered [Unknown]
  - Dyspnoea [Unknown]
  - Fatigue [Unknown]
  - Diarrhoea [Unknown]
  - Oxygen saturation decreased [Unknown]
  - Blood pressure decreased [Unknown]
  - Flushing [Unknown]
  - Presyncope [Unknown]
